FAERS Safety Report 5738429-1 (Version None)
Quarter: 2008Q2

REPORT INFORMATION
  Report Type: 
  Country: None (occurrence: None)
  Receive Date: 20080513
  Receipt Date: 20080502
  Transmission Date: 20081010
  Serious: Yes (Hospitalization)
  Sender: FDA-Public Use
  Company Number: 2008-02793

PATIENT
  Age: 3 Year
  Sex: Female

DRUGS (7)
  1. ETOPOSIDE [Suspect]
     Indication: MALIGNANT HISTIOCYTOSIS
     Dates: start: 20020101
  2. PREDNISONE TAB [Suspect]
     Indication: MALIGNANT HISTIOCYTOSIS
     Dates: start: 20020101
  3. VINBLASTINE SULFATE [Suspect]
     Indication: MALIGNANT HISTIOCYTOSIS
     Dates: start: 20020101
  4. MERCAPTOPURINE [Suspect]
     Indication: MALIGNANT HISTIOCYTOSIS
     Dates: start: 20020101
  5. METHOTREXATE [Suspect]
     Indication: MALIGNANT HISTIOCYTOSIS
     Dates: start: 20030101
  6. L-ASPARAGINASE (ASPARAGINASE) [Suspect]
     Indication: MALIGNANT HISTIOCYTOSIS
     Dates: start: 20030101
  7. CYTARABINE [Suspect]
     Indication: MALIGNANT HISTIOCYTOSIS
     Dates: start: 20030101

REACTIONS (4)
  - DISEASE COMPLICATION [None]
  - EPSTEIN-BARR VIRUS INFECTION [None]
  - FUNGAL INFECTION [None]
  - LYMPHOPROLIFERATIVE DISORDER [None]
